FAERS Safety Report 4983891-5 (Version None)
Quarter: 2006Q2

REPORT INFORMATION
  Report Type: 
  Country: None (occurrence: None)
  Receive Date: 20060426
  Receipt Date: 20050829
  Transmission Date: 20061013
  Serious: Yes (Hospitalization, Other)
  Sender: FDA-Public Use
  Company Number: US-MERCK-0508USA04752

PATIENT
  Age: 59 Year
  Sex: Female
  Weight: 61 kg

DRUGS (3)
  1. VIOXX [Suspect]
     Indication: RHEUMATOID ARTHRITIS
     Route: 048
     Dates: start: 20000101, end: 20040801
  2. ARAVA [Concomitant]
     Route: 065
  3. PREDNISONE [Concomitant]
     Route: 065

REACTIONS (26)
  - ADVERSE EVENT [None]
  - ANGIONEUROTIC OEDEMA [None]
  - ARTERIAL OCCLUSIVE DISEASE [None]
  - ARTERIAL THROMBOSIS [None]
  - ARTERIOSCLEROSIS [None]
  - ARTHRITIS [None]
  - ASTHENIA [None]
  - CAROTID ARTERY OCCLUSION [None]
  - CEREBROVASCULAR ACCIDENT [None]
  - CHEST PAIN [None]
  - GASTRIC ULCER [None]
  - HYPERCHOLESTEROLAEMIA [None]
  - HYPERTENSION [None]
  - HYPOAESTHESIA [None]
  - OSTEOMYELITIS [None]
  - OSTEOPOROSIS [None]
  - OVARIAN FAILURE [None]
  - PERIPHERAL ISCHAEMIA [None]
  - PERIPHERAL VASCULAR DISORDER [None]
  - RHEUMATOID NODULE [None]
  - STAPHYLOCOCCAL INFECTION [None]
  - TRANSIENT ISCHAEMIC ATTACK [None]
  - URTICARIA [None]
  - WOUND [None]
  - WOUND DRAINAGE [None]
  - WOUND INFECTION [None]
